FAERS Safety Report 14661087 (Version 1)
Quarter: 2018Q1

REPORT INFORMATION
  Report Type: Spontaneous
  Country: US (occurrence: US)
  Receive Date: 20180320
  Receipt Date: 20180320
  Transmission Date: 20180509
  Serious: No
  Sender: FDA-Public Use
  Company Number: US-ELI_LILLY_AND_COMPANY-US201803006472

PATIENT
  Sex: Male

DRUGS (1)
  1. TRULICITY [Suspect]
     Active Substance: DULAGLUTIDE
     Indication: TYPE 2 DIABETES MELLITUS
     Dosage: 1.5 MG, UNKNOWN
     Route: 065
     Dates: start: 20180228

REACTIONS (8)
  - Abdominal distension [Recovered/Resolved]
  - Product administered at inappropriate site [Unknown]
  - Blood glucose increased [Unknown]
  - Accidental underdose [Unknown]
  - Flatulence [Recovered/Resolved]
  - Injection site pain [Unknown]
  - Blood glucose abnormal [Unknown]
  - Injection site swelling [Unknown]
